FAERS Safety Report 7771655-9 (Version None)
Quarter: 2011Q3

REPORT INFORMATION
  Report Type: 
  Country: None (occurrence: None)
  Receive Date: 20110922
  Receipt Date: 20100311
  Transmission Date: 20111222
  Serious: No
  Sender: FDA-Public Use
  Company Number: US-ASTRAZENECA-2006UW13992

PATIENT
  Age: 51 Year
  Sex: Female
  Weight: 125.2 kg

DRUGS (13)
  1. SEROQUEL [Suspect]
     Indication: BORDERLINE PERSONALITY DISORDER
     Route: 048
     Dates: start: 19981120
  2. SEROQUEL [Suspect]
     Route: 048
     Dates: start: 20060101, end: 20060601
  3. RITALIN [Concomitant]
  4. LASIX [Concomitant]
     Route: 048
     Dates: start: 20050201
  5. METFORMIN [Concomitant]
  6. THORAZINE [Concomitant]
  7. SEROQUEL [Suspect]
     Dosage: 25MG, 100MG, 200MG
     Route: 048
     Dates: start: 19981101, end: 20060101
  8. SEROQUEL [Suspect]
     Dosage: 25MG, 100MG, 200MG
     Route: 048
     Dates: start: 19981101, end: 20060101
  9. SEROQUEL [Suspect]
     Route: 048
     Dates: start: 20060101, end: 20060601
  10. PROZAC [Concomitant]
     Dosage: 20-80 MG
  11. SEROQUEL [Suspect]
     Indication: DEPRESSION
     Route: 048
     Dates: start: 19981120
  12. FASTIN [Concomitant]
     Dates: start: 19700101, end: 19820101
  13. PROTONIX [Concomitant]

REACTIONS (5)
  - WEIGHT INCREASED [None]
  - BLOOD CHOLESTEROL INCREASED [None]
  - TYPE 2 DIABETES MELLITUS [None]
  - HYPERCHOLESTEROLAEMIA [None]
  - SLEEP APNOEA SYNDROME [None]
